FAERS Safety Report 10363317 (Version 1)
Quarter: 2014Q1

REPORT INFORMATION
  Report Type: Spontaneous
  Country: US (occurrence: None)
  Receive Date: 20140306
  Receipt Date: 20140306
  Transmission Date: 20141002
  Serious: Yes (Hospitalization)
  Sender: FDA-Public Use
  Company Number: 163-21880-13020829

PATIENT
  Age: 52 Year
  Sex: Female
  Weight: 82.56 kg

DRUGS (11)
  1. REVLIMID [Suspect]
     Indication: PLASMA CELL MYELOMA
     Route: 048
     Dates: start: 20120305
  2. CARVEDILOL (CARVEDILOL) [Concomitant]
  3. CLONAZEPAM (CLONAZEPAM) [Concomitant]
  4. CONCERTA (METHYLPHENIDATE HYDROCHLORIDE) (TABLETS) [Concomitant]
  5. GLIMEPIRIDE (GLIMEPIRIDINE) (TABLETS) [Concomitant]
  6. JANUVIA (SITAGLIPTIN PHOSPHATE) (TABLETS) [Concomitant]
  7. MAGNESIUM (MAGNESIUM) [Concomitant]
  8. METFORMIN HCL (METFORMIN HYDROCHLORIDE) [Concomitant]
  9. PANTOPRAZOLE SODIUM (ANTOPRAZOLE SODIUM) [Concomitant]
  10. PRAVASTATIN SODIUM (PRAVASTATIN SODIUM) [Concomitant]
  11. PROZAC (FLUOXETINE HYDROCHLORIDE) (CAPSULES) [Concomitant]

REACTIONS (1)
  - Neutropenia [None]
